FAERS Safety Report 4586907-3 (Version None)
Quarter: 2005Q1

REPORT INFORMATION
  Report Type: 
  Country: None (occurrence: None)
  Receive Date: 20050216
  Receipt Date: 20050216
  Transmission Date: 20050727
  Serious: Yes (Other)
  Sender: FDA-Public Use
  Company Number: None

PATIENT
  Age: 28 Year
  Sex: Male
  Weight: 79.3795 kg

DRUGS (1)
  1. KETEK [Suspect]
     Dosage: 400 MG TOOK 1 TAB ONLY
     Dates: start: 20050206

REACTIONS (3)
  - BACK PAIN [None]
  - HALLUCINATION [None]
  - RASH [None]
